FAERS Safety Report 16487461 (Version 1)
Quarter: 2019Q2

REPORT INFORMATION
  Report Type: Spontaneous
  Country: US (occurrence: US)
  Receive Date: 20190627
  Receipt Date: 20190627
  Transmission Date: 20190711
  Serious: Yes (Other)
  Sender: FDA-Public Use
  Company Number: US-PFIZER INC-2019236560

PATIENT
  Age: 69 Year
  Sex: Female
  Weight: 60.78 kg

DRUGS (3)
  1. DILANTIN [Suspect]
     Active Substance: PHENYTOIN
     Dosage: 300 MG, 1X/DAY (THREE CAPSULES IN THE EVENING)
     Route: 048
     Dates: start: 20190603
  2. TEGRETOL [Concomitant]
     Active Substance: CARBAMAZEPINE
     Indication: EPILEPSY
     Dosage: 200 MG, 1X/DAY
  3. DILANTIN [Suspect]
     Active Substance: PHENYTOIN
     Indication: EPILEPSY
     Dosage: 100 MG, 3X/DAY

REACTIONS (5)
  - Gait inability [Recovering/Resolving]
  - Muscular weakness [Recovering/Resolving]
  - Speech disorder [Recovering/Resolving]
  - Dysarthria [Recovering/Resolving]
  - Visual impairment [Unknown]

NARRATIVE: CASE EVENT DATE: 20190615
